FAERS Safety Report 24600808 (Version 1)
Quarter: 2024Q4

REPORT INFORMATION
  Report Type: Spontaneous
  Country: US (occurrence: US)
  Receive Date: 20241110
  Receipt Date: 20241110
  Transmission Date: 20250114
  Serious: Yes (Other)
  Sender: SANOFI AVENTIS
  Company Number: US-SA-2024SA324053

PATIENT
  Age: 12 Year
  Sex: Female

DRUGS (2)
  1. DUPIXENT [Suspect]
     Active Substance: DUPILUMAB
     Indication: Eosinophilic oesophagitis
     Dosage: 300 MG, QOW
     Route: 058
     Dates: start: 202405
  2. WELLBUTRIN [Suspect]
     Active Substance: BUPROPION HYDROCHLORIDE
     Route: 065
     Dates: start: 20240523, end: 20240523

REACTIONS (9)
  - Ophthalmoplegia [Unknown]
  - Injection site pain [Recovered/Resolved]
  - Headache [Unknown]
  - Pain [Unknown]
  - Strabismus [Unknown]
  - Injection site haemorrhage [Recovered/Resolved]
  - Dizziness [Unknown]
  - Oropharyngeal pain [Unknown]
  - Rash [Recovered/Resolved]

NARRATIVE: CASE EVENT DATE: 20240101
